FAERS Safety Report 18355035 (Version 1)
Quarter: 2020Q4

REPORT INFORMATION
  Report Type: Spontaneous
  Country: US (occurrence: US)
  Receive Date: 20201007
  Receipt Date: 20201007
  Transmission Date: 20210114
  Serious: Yes (Other)
  Sender: FDA-Public Use
  Company Number: None

PATIENT
  Age: 41 Year
  Sex: Female
  Weight: 60.6 kg

DRUGS (1)
  1. UBRELVY [Suspect]
     Active Substance: UBROGEPANT
     Indication: MIGRAINE
     Dates: start: 20201007, end: 20201007

REACTIONS (4)
  - Sinus pain [None]
  - Rhinalgia [None]
  - Oral pain [None]
  - Head discomfort [None]

NARRATIVE: CASE EVENT DATE: 20201007
